FAERS Safety Report 10956394 (Version 1)
Quarter: 2015Q1

REPORT INFORMATION
  Report Type: Spontaneous
  Country: US (occurrence: None)
  Receive Date: 20150325
  Receipt Date: 20150325
  Transmission Date: 20150721
  Serious: Yes (Life-Threatening, Hospitalization)
  Sender: FDA-Public Use
  Company Number: None

PATIENT
  Age: 66 Year
  Sex: Female
  Weight: 90.72 kg

DRUGS (17)
  1. FIORINAL [Concomitant]
     Active Substance: ASPIRIN\BUTALBITAL\CAFFEINE
  2. SUCRALFATE. [Concomitant]
     Active Substance: SUCRALFATE
  3. METAMUCIL [Concomitant]
     Active Substance: PLANTAGO SEED
  4. HYDRALAZINE [Suspect]
     Active Substance: HYDRALAZINE HYDROCHLORIDE
     Indication: HYPERTENSION
     Route: 048
     Dates: start: 200909, end: 201404
  5. MAGNESIUM [Concomitant]
     Active Substance: MAGNESIUM
  6. PLAVIX [Concomitant]
     Active Substance: CLOPIDOGREL BISULFATE
  7. LOPID [Concomitant]
     Active Substance: GEMFIBROZIL
  8. LIVEMIN [Concomitant]
  9. HUMALOG [Concomitant]
     Active Substance: INSULIN LISPRO
  10. SIMVASTATIN. [Concomitant]
     Active Substance: SIMVASTATIN
  11. RAMIPRIL. [Concomitant]
     Active Substance: RAMIPRIL
  12. LORAZEPAM. [Concomitant]
     Active Substance: LORAZEPAM
  13. LASIX [Concomitant]
     Active Substance: FUROSEMIDE
  14. POTASSIUM [Concomitant]
     Active Substance: POTASSIUM
  15. GEMFIBROZIL. [Concomitant]
     Active Substance: GEMFIBROZIL
  16. PRILOSEC [Concomitant]
     Active Substance: OMEPRAZOLE MAGNESIUM
  17. IRON [Concomitant]
     Active Substance: IRON

REACTIONS (5)
  - Chest pain [None]
  - Pericardial effusion [None]
  - Cardio-respiratory arrest [None]
  - Stent placement [None]
  - Pleural effusion [None]

NARRATIVE: CASE EVENT DATE: 20131125
